FAERS Safety Report 16919953 (Version 1)
Quarter: 2019Q4

REPORT INFORMATION
  Report Type: Spontaneous
  Country: IN (occurrence: IN)
  Receive Date: 20191015
  Receipt Date: 20191015
  Transmission Date: 20200122
  Serious: Yes (Hospitalization)
  Sender: FDA-Public Use
  Company Number: IN-HQ SPECIALTY-IN-2019INT000267

PATIENT
  Age: 65 Year
  Sex: Female

DRUGS (2)
  1. LINEZOLID. [Suspect]
     Active Substance: LINEZOLID
     Indication: GANGRENE
     Dosage: 600 MG, 3 DOSES
     Route: 065
  2. CEFUROXIME. [Suspect]
     Active Substance: CEFUROXIME
     Indication: GANGRENE
     Dosage: 500 MG, 3 DOSES

REACTIONS (1)
  - Hypersensitivity vasculitis [Recovered/Resolved]
